FAERS Safety Report 15115126 (Version 1)
Quarter: 2018Q2

REPORT INFORMATION
  Report Type: Spontaneous
  Country: US (occurrence: US)
  Receive Date: 20180612
  Receipt Date: 20180612
  Transmission Date: 20180711
  Serious: Yes (Hospitalization)
  Sender: FDA-Public Use
  Company Number: None

PATIENT
  Age: 57 Year
  Sex: Female
  Weight: 67.05 kg

DRUGS (1)
  1. OFATUMUMAB [Suspect]
     Active Substance: OFATUMUMAB
     Indication: DIFFUSE LARGE B-CELL LYMPHOMA
     Dates: start: 20180516, end: 20180518

REACTIONS (5)
  - Nausea [None]
  - Abdominal pain [None]
  - Flank pain [None]
  - Vomiting [None]
  - Body temperature increased [None]

NARRATIVE: CASE EVENT DATE: 20180609
